FAERS Safety Report 21675177 (Version 1)
Quarter: 2022Q4

REPORT INFORMATION
  Report Type: Spontaneous
  Country: FR (occurrence: FR)
  Receive Date: 20221202
  Receipt Date: 20221202
  Transmission Date: 20230113
  Serious: Yes (Hospitalization)
  Sender: FDA-Public Use
  Company Number: None

PATIENT
  Age: 87 Year
  Sex: Female
  Weight: 42 kg

DRUGS (7)
  1. PIPERACILLIN SODIUM\TAZOBACTAM SODIUM [Suspect]
     Active Substance: PIPERACILLIN SODIUM\TAZOBACTAM SODIUM
     Indication: Pneumonia pseudomonal
     Dosage: 12 G, 1X/DAY
     Route: 042
     Dates: start: 20220808, end: 20220816
  2. LINEZOLID [Suspect]
     Active Substance: LINEZOLID
     Indication: Pneumonia pseudomonal
     Dosage: 600 MG, 2X/DAY
     Route: 042
     Dates: start: 20220805, end: 20220815
  3. AMIKACIN [Suspect]
     Active Substance: AMIKACIN
     Indication: Pneumonia pseudomonal
     Dosage: UNK
     Dates: start: 202208, end: 202208
  4. ACETAMINOPHEN [Concomitant]
     Active Substance: ACETAMINOPHEN
     Dosage: UNK
  5. PANTOPRAZOLE [Concomitant]
     Active Substance: PANTOPRAZOLE
  6. POTASSIUM CHLORIDE [Concomitant]
     Active Substance: POTASSIUM CHLORIDE
  7. 1,3,5-TRIMETHOXYBENZENE [Concomitant]
     Active Substance: 1,3,5-TRIMETHOXYBENZENE
     Dosage: UNK

REACTIONS (1)
  - Haemophagocytic lymphohistiocytosis [Recovering/Resolving]

NARRATIVE: CASE EVENT DATE: 20220816
